FAERS Safety Report 7731055-4 (Version None)
Quarter: 2011Q3

REPORT INFORMATION
  Report Type: 
  Country: None (occurrence: None)
  Receive Date: 20110906
  Receipt Date: 20110906
  Transmission Date: 20111222
  Serious: Yes (Other)
  Sender: FDA-Public Use
  Company Number: None

PATIENT
  Sex: Male
  Weight: 65.77 kg

DRUGS (1)
  1. COMPAZINE [Suspect]
     Indication: NAUSEA
     Route: 041
     Dates: start: 20110823, end: 20110823

REACTIONS (7)
  - MUSCULAR WEAKNESS [None]
  - DIARRHOEA [None]
  - PARAESTHESIA [None]
  - NERVOUSNESS [None]
  - ANXIETY [None]
  - INSOMNIA [None]
  - DISTURBANCE IN ATTENTION [None]
